FAERS Safety Report 9438709 (Version 1)
Quarter: 2013Q3

REPORT INFORMATION
  Report Type: Report from Study
  Country: US (occurrence: US)
  Receive Date: 20130802
  Receipt Date: 20130802
  Transmission Date: 20140515
  Serious: Yes (Other)
  Sender: FDA-Public Use
  Company Number: US-ABBOTT-13P-163-1124404-00

PATIENT
  Age: 60 Year
  Sex: Male
  Weight: 83.99 kg

DRUGS (9)
  1. NIASPAN (COATED) [Suspect]
     Indication: BLOOD CHOLESTEROL INCREASED
     Dosage: 4 - 500MG TABS DAILY AT BEDTIME
  2. NIASPAN (COATED) [Suspect]
     Dosage: AT BEDTIME
  3. PIOGLITAZONE [Concomitant]
     Indication: PRODUCT USED FOR UNKNOWN INDICATION
  4. METFORMIN HYDROCHLORIDE [Concomitant]
     Indication: PRODUCT USED FOR UNKNOWN INDICATION
  5. GLIMEPIRIDE [Concomitant]
     Indication: PRODUCT USED FOR UNKNOWN INDICATION
     Dosage: 1.5 - 2 MG TABS DAILY = 3 MG DAILY
  6. LISINOPRIL [Concomitant]
     Indication: PRODUCT USED FOR UNKNOWN INDICATION
  7. VITAMIN B12 [Concomitant]
     Indication: PRODUCT USED FOR UNKNOWN INDICATION
  8. BYETTA [Concomitant]
     Indication: PRODUCT USED FOR UNKNOWN INDICATION
  9. ASA [Concomitant]
     Indication: PRODUCT USED FOR UNKNOWN INDICATION

REACTIONS (5)
  - Road traffic accident [Recovered/Resolved]
  - Joint injury [Recovered/Resolved]
  - Flushing [Recovering/Resolving]
  - Feeling hot [Recovering/Resolving]
  - Pruritus [Recovering/Resolving]
